FAERS Safety Report 7542393-2 (Version None)
Quarter: 2011Q2

REPORT INFORMATION
  Report Type: 
  Country: None (occurrence: None)
  Receive Date: 20110613
  Receipt Date: 20110606
  Transmission Date: 20111010
  Serious: No
  Sender: FDA-Public Use
  Company Number: JP-B.I. PHARMACEUTICALS,INC./RIDGEFIELD-2011-BP-13871NB

PATIENT
  Age: 72 Year
  Sex: Female

DRUGS (6)
  1. PRADAXA [Suspect]
     Indication: ATRIAL FIBRILLATION
     Dosage: 220 MG
     Route: 048
     Dates: start: 20110518, end: 20110519
  2. WARFARIN SODIUM [Concomitant]
     Route: 048
  3. NORVASC [Concomitant]
     Route: 048
  4. ENALAPRIL MALEATE [Concomitant]
     Route: 048
  5. LASIX [Concomitant]
     Route: 048
  6. HERBESSER R [Concomitant]
     Route: 048

REACTIONS (1)
  - RASH [None]
